FAERS Safety Report 7915525-1 (Version None)
Quarter: 2011Q4

REPORT INFORMATION
  Report Type: 
  Country: None (occurrence: None)
  Receive Date: 20111115
  Receipt Date: 20111018
  Transmission Date: 20120403
  Serious: No
  Sender: FDA-Public Use
  Company Number: US-BAYER-2011-102094

PATIENT
  Age: 86 Year
  Sex: Female
  Weight: 50 kg

DRUGS (3)
  1. ALEVE (CAPLET) [Suspect]
     Dosage: 0.5 DF, QD
     Dates: start: 20111018, end: 20111018
  2. STEROID [Concomitant]
  3. ALEVE (CAPLET) [Suspect]
     Indication: GOUT
     Dosage: 1 DF, QD
     Dates: start: 20111017, end: 20111017

REACTIONS (4)
  - MUSCULAR WEAKNESS [None]
  - ASTHENIA [None]
  - DIZZINESS [None]
  - GAIT DISTURBANCE [None]
